FAERS Safety Report 11386897 (Version 3)
Quarter: 2015Q4

REPORT INFORMATION
  Report Type: Spontaneous
  Country: US (occurrence: US)
  Receive Date: 20150817
  Receipt Date: 20151016
  Transmission Date: 20160304
  Serious: No
  Sender: FDA-Public Use
  Company Number: US-PFIZER INC-2015267368

PATIENT
  Age: 54 Year
  Sex: Female

DRUGS (1)
  1. FOLIC ACID. [Suspect]
     Active Substance: FOLIC ACID
     Dosage: 50 %, DAILY (THEY PROVIDE 50% OF FOLIC ACID NEEDED DAILY.)
     Dates: start: 20150503, end: 20150516

REACTIONS (4)
  - Drug hypersensitivity [Recovered/Resolved]
  - Rash erythematous [Unknown]
  - Peripheral swelling [Unknown]
  - Rash papular [Unknown]

NARRATIVE: CASE EVENT DATE: 20150603
